FAERS Safety Report 17082825 (Version 1)
Quarter: 2019Q4

REPORT INFORMATION
  Report Type: Spontaneous
  Country: ES (occurrence: ES)
  Receive Date: 20191127
  Receipt Date: 20191127
  Transmission Date: 20200122
  Serious: Yes (Other)
  Sender: FDA-Public Use
  Company Number: NVSC2019ES044102

PATIENT
  Age: 48 Year
  Sex: Male

DRUGS (5)
  1. NEUPRO [Concomitant]
     Active Substance: ROTIGOTINE
     Indication: PRODUCT USED FOR UNKNOWN INDICATION
     Dosage: 2 MG, QD
     Route: 061
  2. PREDNISONA PENSA [Concomitant]
     Indication: CAPLAN^S SYNDROME
     Dosage: 20 MG, QD
     Route: 048
  3. MYFORTIC [Suspect]
     Active Substance: MYCOPHENOLATE SODIUM
     Indication: CAPLAN^S SYNDROME
     Dosage: 360 MG (FOR 8 DAYS)
     Route: 048
     Dates: start: 20190826, end: 20190917
  4. XERISTAR [Concomitant]
     Active Substance: DULOXETINE HYDROCHLORIDE
     Indication: DEPRESSION
     Dosage: 30 MG, QD
     Route: 048
  5. ORFIDAL [Concomitant]
     Active Substance: LORAZEPAM
     Indication: ANXIETY
     Dosage: 1.5 MG, QD
     Route: 048

REACTIONS (1)
  - Herpes zoster [Recovering/Resolving]

NARRATIVE: CASE EVENT DATE: 20190917
